FAERS Safety Report 18809931 (Version 2)
Quarter: 2021Q1

REPORT INFORMATION
  Report Type: Report from Study
  Country: IT (occurrence: IT)
  Receive Date: 20210129
  Receipt Date: 20210212
  Transmission Date: 20210419
  Serious: Yes (Other)
  Sender: FDA-Public Use
  Company Number: IT-VERTEX PHARMACEUTICALS-2020-014984

PATIENT
  Age: 34 Year
  Sex: Male
  Weight: 68 kg

DRUGS (18)
  1. LIPASE [Concomitant]
     Active Substance: LIPASE
  2. HYANEB [Concomitant]
     Dosage: UNK
     Dates: start: 20191005
  3. AZITHROMYCIN ANHYDROUS. [Concomitant]
     Active Substance: AZITHROMYCIN ANHYDROUS
     Dosage: UNK
     Route: 048
     Dates: start: 20011211
  4. SALBUTAMOL [Concomitant]
     Active Substance: ALBUTEROL
  5. CLENIL [BECLOMETASONE DIPROPIONATE] [Concomitant]
     Dosage: UNK
     Dates: start: 20200708
  6. ELEXACAFTOR/TEZACAFTOR/IVACAFTOR [Suspect]
     Active Substance: ELEXACAFTOR\IVACAFTOR\TEZACAFTOR
     Dosage: REDUCED DOSE
     Route: 048
     Dates: start: 20200813, end: 20201223
  7. PULMOZYME [Concomitant]
     Active Substance: DORNASE ALFA
     Dosage: UNK
     Dates: start: 20120922
  8. CREON [Concomitant]
     Active Substance: PANCRELIPASE AMYLASE\PANCRELIPASE LIPASE\PANCRELIPASE PROTEASE
     Dosage: UNK
     Route: 048
     Dates: start: 20200410
  9. ELEXACAFTOR/TEZACAFTOR/IVACAFTOR [Suspect]
     Active Substance: ELEXACAFTOR\IVACAFTOR\TEZACAFTOR
     Indication: CYSTIC FIBROSIS
     Dosage: 2 TABLETS (ELEXACAFTOR/TEZACAFTOR/IVACAFTOR) AM
     Route: 048
     Dates: start: 20200108, end: 20200715
  10. LEVOFLOXACIN. [Concomitant]
     Active Substance: LEVOFLOXACIN
     Dosage: UNK
     Dates: start: 20170920
  11. ELEXACAFTOR/TEZACAFTOR/IVACAFTOR [Suspect]
     Active Substance: ELEXACAFTOR\IVACAFTOR\TEZACAFTOR
     Dosage: ALTERNATING ONE WEEK OF FULL DOSE AND ONE WEEK OF REDUCED DOSE
     Route: 048
     Dates: start: 20201224
  12. KALYDECO [Suspect]
     Active Substance: IVACAFTOR
     Dosage: REDUCED DOSE
     Route: 048
     Dates: start: 20200813, end: 20201223
  13. BRONCOVALEAS [SALBUTAMOL] [Concomitant]
     Dosage: UNK
     Dates: start: 20200708
  14. KALYDECO [Suspect]
     Active Substance: IVACAFTOR
     Indication: CYSTIC FIBROSIS
     Dosage: 1 TABLET (IVACAFTOR) PM
     Route: 048
     Dates: start: 20200108, end: 20200715
  15. KALYDECO [Suspect]
     Active Substance: IVACAFTOR
     Dosage: ALTERNATING ONE WEEK OF FULL DOSE AND ONE WEEK OF REDUCED DOSE
     Route: 048
     Dates: start: 20201224
  16. DESOXYRIBONUCLEASE [Concomitant]
     Active Substance: DEOXYRIBONUCLEASE I BOVINE
  17. COLECALCIFEROL [Concomitant]
     Active Substance: CHOLECALCIFEROL
     Dosage: UNK
     Route: 048
     Dates: start: 20180301
  18. TOBRAMYCIN. [Concomitant]
     Active Substance: TOBRAMYCIN
     Dosage: UNK
     Dates: start: 20141105

REACTIONS (3)
  - Hypertransaminasaemia [Recovering/Resolving]
  - Hepatic steatosis [Recovering/Resolving]
  - Hyperbilirubinaemia [Recovering/Resolving]

NARRATIVE: CASE EVENT DATE: 20200714
